FAERS Safety Report 25934785 (Version 1)
Quarter: 2025Q4

REPORT INFORMATION
  Report Type: Spontaneous
  Country: GB (occurrence: GB)
  Receive Date: 20251017
  Receipt Date: 20251017
  Transmission Date: 20260117
  Serious: Yes (Other)
  Sender: RANBAXY
  Company Number: GB-MHRA-MED-202510041902263610-WBFSJ

PATIENT
  Sex: Female
  Weight: 61 kg

DRUGS (1)
  1. SERTRALINE [Suspect]
     Active Substance: SERTRALINE HYDROCHLORIDE
     Indication: Menopause
     Dosage: 50 MILLIGRAM, DAILY, 50MG ONE A DAY
     Route: 065
     Dates: start: 20250624, end: 20250930

REACTIONS (2)
  - Diarrhoea [Recovered/Resolved]
  - Mania [Recovered/Resolved]

NARRATIVE: CASE EVENT DATE: 20250731
